FAERS Safety Report 12698542 (Version 1)
Quarter: 2016Q3

REPORT INFORMATION
  Report Type: Spontaneous
  Country: US (occurrence: US)
  Receive Date: 20160830
  Receipt Date: 20160830
  Transmission Date: 20161109
  Serious: No
  Sender: FDA-Public Use
  Company Number: US-PFIZER INC-2015467764

PATIENT
  Age: 71 Year
  Sex: Male
  Weight: 124.26 kg

DRUGS (16)
  1. LANTUS [Concomitant]
     Active Substance: INSULIN GLARGINE
     Dosage: 46 UNIT, UNK
     Dates: start: 20141120
  2. LANTUS [Concomitant]
     Active Substance: INSULIN GLARGINE
     Dosage: 50 UNIT, QD
     Dates: start: 20150323
  3. BACTRIM DS [Concomitant]
     Active Substance: SULFAMETHOXAZOLE\TRIMETHOPRIM
     Indication: CHRONIC SINUSITIS
     Dosage: 1 TAB, BID
     Route: 065
  4. BENAZEPRIL HCL [Concomitant]
     Active Substance: BENAZEPRIL HYDROCHLORIDE
     Indication: DIABETES MELLITUS
     Dosage: 1 TAB, BID
     Route: 048
     Dates: start: 20150420
  5. LYRICA [Suspect]
     Active Substance: PREGABALIN
     Indication: DIABETES MELLITUS
     Route: 065
  6. TRAMADOL HCL [Concomitant]
     Active Substance: TRAMADOL HYDROCHLORIDE
     Indication: OSTEOARTHRITIS
     Dosage: 1 TAB, Q8H
     Route: 065
  7. LANTUS [Concomitant]
     Active Substance: INSULIN GLARGINE
     Indication: DIABETES MELLITUS
     Dosage: 34 UNIT, UNK
     Route: 065
     Dates: start: 20151112
  8. NOVOLIN [Concomitant]
     Active Substance: INSULIN HUMAN
     Indication: DIABETES MELLITUS
     Dosage: 20 UNIT, UNK
     Route: 065
     Dates: start: 20150729
  9. METFORMIN HYDROCHLORIDE. [Concomitant]
     Active Substance: METFORMIN HYDROCHLORIDE
     Indication: DIABETES MELLITUS
     Dosage: 1 TAB, BID
     Route: 065
     Dates: start: 20150330
  10. ELIQUIS [Suspect]
     Active Substance: APIXABAN
     Indication: CARDIAC DISORDER
     Dosage: 5 MG, UNK
     Route: 065
     Dates: start: 20141120
  11. TOVIAZ [Suspect]
     Active Substance: FESOTERODINE FUMARATE
     Indication: URINE ANALYSIS ABNORMAL
     Dosage: 4 MG, UNK
     Route: 048
     Dates: start: 20141029
  12. VALSARTAN HCTZ [Concomitant]
     Active Substance: HYDROCHLOROTHIAZIDE\VALSARTAN
     Route: 065
  13. CARVEDILOL. [Concomitant]
     Active Substance: CARVEDILOL
     Indication: CARDIAC DISORDER
     Dosage: UNK, 2X/DAY
     Route: 065
     Dates: start: 20141120
  14. CRESTOR [Concomitant]
     Active Substance: ROSUVASTATIN CALCIUM
     Indication: CARDIAC DISORDER
     Dosage: UNK
     Route: 065
     Dates: start: 20141120
  15. OMEPRAZOLE. [Concomitant]
     Active Substance: OMEPRAZOLE
     Indication: DIABETES MELLITUS
     Dosage: UNK MG, UNK
     Route: 065
     Dates: start: 20140718
  16. FUROSEMIDE. [Concomitant]
     Active Substance: FUROSEMIDE
     Indication: CARDIAC DISORDER
     Dosage: UNK
     Route: 065
     Dates: start: 20141112

REACTIONS (2)
  - Adverse event [Unknown]
  - Product use issue [Unknown]
